FAERS Safety Report 7984116-9 (Version None)
Quarter: 2011Q4

REPORT INFORMATION
  Report Type: 
  Country: None (occurrence: None)
  Receive Date: 20111216
  Receipt Date: 20111213
  Transmission Date: 20120403
  Serious: Yes (Hospitalization, Other)
  Sender: FDA-Public Use
  Company Number: US-PFIZER INC-2011303361

PATIENT
  Sex: Female
  Weight: 68 kg

DRUGS (6)
  1. LYRICA [Suspect]
     Indication: PAIN IN EXTREMITY
  2. METHOTREXATE [Concomitant]
     Indication: RHEUMATOID ARTHRITIS
     Dosage: UNK
  3. ZOLEDRONIC ACID [Concomitant]
     Indication: SPINAL DISORDER
     Dosage: UNK
     Route: 042
  4. LYRICA [Suspect]
     Indication: PAIN
     Dosage: UNK
  5. LYRICA [Suspect]
     Indication: ARTHRALGIA
  6. GOLIMUMAB [Suspect]
     Indication: RHEUMATOID ARTHRITIS
     Dosage: 50 MG, UNK
     Route: 058
     Dates: start: 20090101

REACTIONS (7)
  - SPINAL FRACTURE [None]
  - INTERVERTEBRAL DISC PROTRUSION [None]
  - BODY HEIGHT DECREASED [None]
  - FALL [None]
  - BALANCE DISORDER [None]
  - PAIN [None]
  - PAIN IN EXTREMITY [None]
